FAERS Safety Report 11303930 (Version 1)
Quarter: 2015Q3

REPORT INFORMATION
  Report Type: Spontaneous
  Country: US (occurrence: US)
  Receive Date: 20150723
  Receipt Date: 20150723
  Transmission Date: 20151125
  Serious: No
  Sender: FDA-Public Use
  Company Number: US-JNJFOC-20141212936

PATIENT
  Age: 27 Year
  Sex: Female
  Weight: 122.47 kg

DRUGS (3)
  1. ZYRTEC [Suspect]
     Active Substance: CETIRIZINE HYDROCHLORIDE
     Route: 048
  2. UNSPECIFIED DECONGESTANTS [Concomitant]
     Indication: MULTIPLE ALLERGIES
     Route: 065
     Dates: start: 20141208
  3. ZYRTEC [Suspect]
     Active Substance: CETIRIZINE HYDROCHLORIDE
     Indication: MULTIPLE ALLERGIES
     Route: 048
     Dates: start: 20141208

REACTIONS (1)
  - Drug ineffective [Unknown]
